FAERS Safety Report 21919530 (Version 1)
Quarter: 2023Q1

REPORT INFORMATION
  Report Type: Spontaneous
  Country: CN (occurrence: CN)
  Receive Date: 20230127
  Receipt Date: 20230127
  Transmission Date: 20230418
  Serious: Yes (Other)
  Sender: FDA-Public Use
  Company Number: CN-PADAGIS-2023PAD00059

PATIENT

DRUGS (9)
  1. DOXORUBICIN HYDROCHLORIDE [Suspect]
     Active Substance: DOXORUBICIN HYDROCHLORIDE
     Indication: Ovarian cancer stage III
     Dosage: UNK, 1 CYCLE
     Route: 065
     Dates: start: 202012
  2. CARBOPLATIN [Suspect]
     Active Substance: CARBOPLATIN
     Indication: Ovarian cancer stage III
     Dosage: 6 CYCLES
     Route: 065
     Dates: start: 201510
  3. CARBOPLATIN [Suspect]
     Active Substance: CARBOPLATIN
     Dosage: 4 CYCLES
     Route: 065
     Dates: start: 201901
  4. CARBOPLATIN [Suspect]
     Active Substance: CARBOPLATIN
     Dosage: 5 CYCLES
     Route: 065
     Dates: start: 201912
  5. CARBOPLATIN [Suspect]
     Active Substance: CARBOPLATIN
     Dosage: 6 CYCLES
     Route: 065
     Dates: start: 202004
  6. PACLITAXEL [Suspect]
     Active Substance: PACLITAXEL
     Indication: Ovarian cancer stage III
     Dosage: 5 CYCLES
     Route: 065
     Dates: start: 201912
  7. PACLITAXEL [Suspect]
     Active Substance: PACLITAXEL
     Dosage: 6 CYCLES
     Route: 065
     Dates: start: 202004
  8. BEVACIZUMAB [Suspect]
     Active Substance: BEVACIZUMAB
     Indication: Ovarian cancer stage III
     Dosage: 6 CYCLES
     Route: 065
     Dates: start: 202004
  9. BEVACIZUMAB [Suspect]
     Active Substance: BEVACIZUMAB
     Dosage: MAINTENANCE THERAPY(2 CYCLES)
     Route: 065
     Dates: start: 202009

REACTIONS (2)
  - Intestinal obstruction [Unknown]
  - Myelosuppression [Unknown]
